FAERS Safety Report 8524972 (Version 2)
Quarter: 2013Q2

REPORT INFORMATION
  Report Type: Spontaneous
  Country: US (occurrence: US)
  Receive Date: 20120423
  Receipt Date: 20130523
  Transmission Date: 20140414
  Serious: Yes (Other)
  Sender: FDA-Public Use
  Company Number: US-PFIZER INC-2012097197

PATIENT
  Age: 44 Year
  Sex: Female
  Weight: 108 kg

DRUGS (4)
  1. CORTEF [Suspect]
     Indication: ADRENAL INSUFFICIENCY
     Dosage: UNK MG, 2X/DAY
     Route: 048
     Dates: start: 200305
  2. CORTEF [Suspect]
     Dosage: UNK
     Dates: start: 2003
  3. PRAVASTATIN SODIUM [Concomitant]
     Indication: BLOOD CHOLESTEROL ABNORMAL
     Dosage: UNK (EITHER 10MG OR 20 MG), DAILY
  4. ZETIA [Concomitant]
     Indication: BLOOD CHOLESTEROL ABNORMAL
     Dosage: UNK (EITHER 10MG OR 20 MG), DAILY

REACTIONS (2)
  - Cataract [Not Recovered/Not Resolved]
  - Astigmatism [Unknown]
